FAERS Safety Report 6277677-1 (Version None)
Quarter: 2009Q3

REPORT INFORMATION
  Report Type: 
  Country: None (occurrence: None)
  Receive Date: 20090722
  Receipt Date: 20090721
  Transmission Date: 20100115
  Serious: Yes (Other)
  Sender: FDA-Public Use
  Company Number: A0797886A

PATIENT
  Age: 56 Year
  Sex: Female

DRUGS (3)
  1. ALLI [Suspect]
     Route: 048
     Dates: start: 20080924, end: 20090716
  2. CIPROFLOXACIN [Concomitant]
  3. WELLBUTRIN [Concomitant]

REACTIONS (6)
  - ABDOMINAL PAIN [None]
  - BACK PAIN [None]
  - BLOOD URINE PRESENT [None]
  - CHOLELITHIASIS [None]
  - CYSTITIS [None]
  - NEPHROLITHIASIS [None]
